FAERS Safety Report 8616350-9 (Version None)
Quarter: 2012Q3

REPORT INFORMATION
  Report Type: 
  Country: None (occurrence: None)
  Receive Date: 20120815
  Receipt Date: 20120815
  Transmission Date: 20120928
  Serious: Yes (Hospitalization)
  Sender: FDA-Public Use
  Company Number: None

PATIENT
  Age: 50 Year
  Sex: Female
  Weight: 67.586 kg

DRUGS (2)
  1. BENLYSTA [Suspect]
     Indication: SYSTEMIC LUPUS ERYTHEMATOSUS
     Dosage: 720 MONTLY IV DRIP
     Route: 041
     Dates: start: 20120301, end: 20120325
  2. BENLYSTA [Suspect]
     Indication: PANNICULITIS
     Dosage: 720 MONTLY IV DRIP
     Route: 041
     Dates: start: 20120301, end: 20120325

REACTIONS (1)
  - DIVERTICULAR PERFORATION [None]
